FAERS Safety Report 6323943-0 (Version None)
Quarter: 2009Q3

REPORT INFORMATION
  Report Type: 
  Country: None (occurrence: None)
  Receive Date: 20090824
  Receipt Date: 20090817
  Transmission Date: 20100115
  Serious: Yes (Other)
  Sender: FDA-Public Use
  Company Number: A0799921A

PATIENT
  Age: 39 Year
  Sex: Female

DRUGS (3)
  1. LAMICTAL [Suspect]
     Indication: EPILEPSY
     Route: 048
     Dates: start: 20090101
  2. SYNTHROID [Concomitant]
  3. ALLEGRA [Concomitant]

REACTIONS (6)
  - DEPRESSION [None]
  - GENERALISED NON-CONVULSIVE EPILEPSY [None]
  - HYPOTHYROIDISM [None]
  - PRURITUS [None]
  - RASH [None]
  - RASH MACULAR [None]
